FAERS Safety Report 12372735 (Version 1)
Quarter: 2016Q2

REPORT INFORMATION
  Report Type: Report from Study
  Country: JP (occurrence: JP)
  Receive Date: 20160516
  Receipt Date: 20160516
  Transmission Date: 20160815
  Serious: Yes (Death)
  Sender: FDA-Public Use
  Company Number: JP-SA-2016SA093356

PATIENT
  Age: 18 Year

DRUGS (1)
  1. EVOLTRA [Suspect]
     Active Substance: CLOFARABINE
     Indication: ACUTE LYMPHOCYTIC LEUKAEMIA REFRACTORY
     Route: 042
     Dates: start: 20151208

REACTIONS (1)
  - Death [Fatal]

NARRATIVE: CASE EVENT DATE: 20160107
